FAERS Safety Report 9684065 (Version 4)
Quarter: 2014Q2

REPORT INFORMATION
  Report Type: Spontaneous
  Country: US (occurrence: US)
  Receive Date: 20131112
  Receipt Date: 20140528
  Transmission Date: 20141212
  Serious: Yes (Hospitalization)
  Sender: FDA-Public Use
  Company Number: US-ACTELION-A-US2011-57135

PATIENT
  Age: 42 Year
  Sex: Female

DRUGS (1)
  1. TRACLEER [Suspect]
     Indication: CREST SYNDROME
     Dosage: UNK
     Route: 048
     Dates: start: 20100802

REACTIONS (3)
  - Skin ulcer [Unknown]
  - Limb operation [Unknown]
  - Scleroderma [Unknown]
